FAERS Safety Report 9768207 (Version 1)
Quarter: 2013Q4

REPORT INFORMATION
  Report Type: Spontaneous
  Country: US (occurrence: US)
  Receive Date: 20131217
  Receipt Date: 20131217
  Transmission Date: 20140711
  Serious: Yes (Death, Other)
  Sender: FDA-Public Use
  Company Number: US-BRISTOL-MYERS SQUIBB COMPANY-19915172

PATIENT
  Age: 75 Year
  Sex: Male

DRUGS (1)
  1. YERVOY [Suspect]
     Indication: MALIGNANT MELANOMA
     Dosage: 20JAN2012
     Route: 042
     Dates: start: 20111216

REACTIONS (6)
  - Death [Fatal]
  - Intestinal perforation [Unknown]
  - Diarrhoea [Unknown]
  - Sepsis [Unknown]
  - Wound secretion [Unknown]
  - Rash [Unknown]
